FAERS Safety Report 18754380 (Version 1)
Quarter: 2021Q1

REPORT INFORMATION
  Report Type: Spontaneous
  Country: US (occurrence: US)
  Receive Date: 20210119
  Receipt Date: 20210119
  Transmission Date: 20210419
  Serious: No
  Sender: FDA-Public Use
  Company Number: US-BEH-2021127283

PATIENT
  Age: 9 Year
  Sex: Male

DRUGS (1)
  1. HIZENTRA [Suspect]
     Active Substance: HUMAN IMMUNOGLOBULIN G
     Dosage: 10 MILLIGRAM, QOW
     Route: 058

REACTIONS (1)
  - Skin discolouration [Unknown]

NARRATIVE: CASE EVENT DATE: 202101
